FAERS Safety Report 6347544-3 (Version None)
Quarter: 2009Q3

REPORT INFORMATION
  Report Type: 
  Country: None (occurrence: None)
  Receive Date: 20090908
  Receipt Date: 20090908
  Transmission Date: 20100115
  Serious: Yes (Life-Threatening, Hospitalization, Other)
  Sender: FDA-Public Use
  Company Number: None

PATIENT
  Age: 49 Year
  Sex: Male
  Weight: 88.4514 kg

DRUGS (1)
  1. LISINOPRIL [Suspect]
     Indication: HYPERTENSION
     Dosage: 1 1XD PO
     Route: 048
     Dates: start: 20090903, end: 20090904

REACTIONS (8)
  - ANGIOEDEMA [None]
  - ANOXIA [None]
  - DYSPNOEA [None]
  - FALL [None]
  - LIP DISCOLOURATION [None]
  - PULSE ABSENT [None]
  - RENAL IMPAIRMENT [None]
  - SCREAMING [None]
